FAERS Safety Report 6746942-3 (Version None)
Quarter: 2010Q2

REPORT INFORMATION
  Report Type: 
  Country: None (occurrence: None)
  Receive Date: 20100528
  Receipt Date: 20100129
  Transmission Date: 20101027
  Serious: No
  Sender: FDA-Public Use
  Company Number: US-ASTRAZENECA-2010SE04993

PATIENT
  Sex: Male

DRUGS (2)
  1. PRILOSEC OTC [Suspect]
     Dosage: 1 TABLET, 2 /DAY
     Route: 048
  2. NOT SPECIFIED [Concomitant]

REACTIONS (3)
  - CONDITION AGGRAVATED [None]
  - DYSPEPSIA [None]
  - FEELING ABNORMAL [None]
